FAERS Safety Report 8937472 (Version 6)
Quarter: 2013Q2

REPORT INFORMATION
  Report Type: Spontaneous
  Country: US (occurrence: US)
  Receive Date: 20121130
  Receipt Date: 20130610
  Transmission Date: 20140414
  Serious: Yes (Hospitalization, Other)
  Sender: FDA-Public Use
  Company Number: US-009507513-1210USA010170

PATIENT
  Sex: Female
  Weight: 62.13 kg

DRUGS (12)
  1. FOSAMAX [Suspect]
     Indication: OSTEOPOROSIS
     Dosage: 5 MG, QD
     Route: 048
     Dates: start: 20000125, end: 200306
  2. FOSAMAX [Suspect]
     Dosage: 35 MG, QD
     Route: 048
     Dates: start: 200306, end: 200802
  3. FOSAMAX [Suspect]
     Dosage: UNK
     Route: 048
     Dates: start: 2010, end: 2011
  4. FOSAMAX [Suspect]
     Dosage: 70 MG, UNK
     Route: 048
     Dates: start: 200306, end: 200802
  5. ALENDRONATE SODIUM [Suspect]
     Indication: OSTEOPOROSIS
     Dosage: 10 MG, UNK
     Route: 048
     Dates: start: 20080220, end: 201107
  6. ALENDRONATE SODIUM [Suspect]
     Dosage: 35 UNK, UNK
     Route: 048
     Dates: start: 20080220, end: 201107
  7. ALENDRONATE SODIUM [Suspect]
     Dosage: 35 UNK, UNK
     Route: 048
     Dates: start: 20100930, end: 20110729
  8. VITAMIN E [Concomitant]
     Dosage: UNK
     Route: 048
     Dates: start: 1996, end: 2011
  9. GLUCOSAMINE [Concomitant]
     Dosage: UNK
     Route: 048
     Dates: start: 1991, end: 2011
  10. ASCORBIC ACID [Concomitant]
     Dosage: UNK
     Route: 048
     Dates: start: 1996, end: 2011
  11. VITAMINS (UNSPECIFIED) [Concomitant]
     Dosage: UNK
     Route: 048
     Dates: start: 1996, end: 2011
  12. CORTICOSTEROIDS (UNSPECIFIED) [Concomitant]
     Dosage: UNK
     Route: 048
     Dates: start: 1992

REACTIONS (56)
  - Femur fracture [Recovering/Resolving]
  - Intramedullary rod insertion [Recovering/Resolving]
  - Haematoma [Unknown]
  - Femur fracture [Recovered/Resolved]
  - Fall [Unknown]
  - Pulmonary mass [Unknown]
  - Anaemia postoperative [Recovering/Resolving]
  - Colon operation [Unknown]
  - Surgery [Unknown]
  - Fracture nonunion [Unknown]
  - Foot fracture [Unknown]
  - Impaired healing [Unknown]
  - Cataract [Unknown]
  - Cataract operation [Unknown]
  - Tendon disorder [Recovering/Resolving]
  - Rotator cuff syndrome [Unknown]
  - Upper limb fracture [Unknown]
  - Fall [Unknown]
  - Rotator cuff syndrome [Unknown]
  - Foot fracture [Unknown]
  - Stress [Not Recovered/Not Resolved]
  - Device breakage [Unknown]
  - Neurodermatitis [Unknown]
  - Lacunar infarction [Unknown]
  - Hyperuricaemia [Unknown]
  - Cataract [Unknown]
  - Nutritional condition abnormal [Unknown]
  - Scoliosis [Unknown]
  - Exostosis [Unknown]
  - Facet joint syndrome [Unknown]
  - Intervertebral disc space narrowing [Unknown]
  - Spondylolisthesis [Unknown]
  - Aortic calcification [Unknown]
  - Aortic aneurysm [Unknown]
  - Spinal osteoarthritis [Unknown]
  - Osteoarthritis [Unknown]
  - Osteoarthritis [Unknown]
  - Calcinosis [Unknown]
  - Mood swings [Unknown]
  - Aggression [Unknown]
  - Weight decreased [Unknown]
  - Blood cholesterol increased [Not Recovered/Not Resolved]
  - Fall [Unknown]
  - Joint dislocation reduction [Unknown]
  - Human bite [Unknown]
  - Laceration [Unknown]
  - Joint dislocation [Unknown]
  - Asthma [Unknown]
  - Chronic obstructive pulmonary disease [Unknown]
  - Inflammation [Recovering/Resolving]
  - Osteoarthritis [Unknown]
  - Bone cyst [Unknown]
  - Back pain [Unknown]
  - Back pain [Unknown]
  - Pruritus [Unknown]
  - Arthralgia [Unknown]
